FAERS Safety Report 4564617-6 (Version None)
Quarter: 2005Q1

REPORT INFORMATION
  Report Type: 
  Country: None (occurrence: None)
  Receive Date: 20050126
  Receipt Date: 20040601
  Transmission Date: 20050727
  Serious: Yes (Hospitalization)
  Sender: FDA-Public Use
  Company Number: SGB1-2004-00492

PATIENT
  Sex: Male

DRUGS (1)
  1. AGRYLIN [Suspect]
     Indication: THROMBOCYTHAEMIA
     Dosage: 0.5MG, ORAL
     Route: 048

REACTIONS (2)
  - INSOMNIA [None]
  - VERTIGO [None]
